FAERS Safety Report 18062229 (Version 1)
Quarter: 2020Q3

REPORT INFORMATION
  Report Type: Report from Study
  Country: PA (occurrence: PA)
  Receive Date: 20200723
  Receipt Date: 20200723
  Transmission Date: 20201103
  Serious: Yes (Other)
  Sender: FDA-Public Use
  Company Number: NVSC2020PA098137

PATIENT
  Age: 27 Year
  Sex: Female

DRUGS (2)
  1. SCAPHO [Suspect]
     Active Substance: SECUKINUMAB
     Indication: PSORIASIS
     Dosage: 300 MG, QW
     Route: 058
     Dates: start: 20200408
  2. SCAPHO [Suspect]
     Active Substance: SECUKINUMAB
     Dosage: 300 MG, QMO (EVERY 4 WEEKS)
     Route: 058

REACTIONS (19)
  - Accidental exposure to product [Unknown]
  - Skin hypertrophy [Unknown]
  - Diabetes mellitus [Unknown]
  - Injury associated with device [Recovered/Resolved]
  - Erythema [Unknown]
  - Incorrect dosage administered [Unknown]
  - Wrong technique in device usage process [Unknown]
  - Blood insulin abnormal [Unknown]
  - Skin plaque [Not Recovered/Not Resolved]
  - Obsessive thoughts [Not Recovered/Not Resolved]
  - Injection site pain [Recovered/Resolved]
  - Weight decreased [Unknown]
  - Groin infection [Not Recovered/Not Resolved]
  - Injection site haemorrhage [Recovered/Resolved]
  - Arthralgia [Not Recovered/Not Resolved]
  - Nail disorder [Not Recovered/Not Resolved]
  - Pain [Not Recovered/Not Resolved]
  - Injection site pain [Recovered/Resolved]
  - Candida infection [Recovering/Resolving]

NARRATIVE: CASE EVENT DATE: 20200408
